FAERS Safety Report 5577653-8 (Version None)
Quarter: 2007Q4

REPORT INFORMATION
  Report Type: 
  Country: None (occurrence: None)
  Receive Date: 20071231
  Receipt Date: 20071221
  Transmission Date: 20080405
  Serious: Yes (Disabling, Other)
  Sender: FDA-Public Use
  Company Number: PHHO2007AR20971

PATIENT
  Age: 47 Year
  Sex: Male
  Weight: 94.5 kg

DRUGS (2)
  1. TELBIVUDINE [Suspect]
     Indication: HEPATITIS B
     Dosage: 600 MG, QD
     Route: 048
     Dates: start: 20070723, end: 20071209
  2. PEGASYS [Suspect]
     Indication: HEPATITIS B
     Dosage: 180 UG, QW
     Route: 058
     Dates: start: 20070723, end: 20071210

REACTIONS (5)
  - BLOOD CREATINE PHOSPHOKINASE INCREASED [None]
  - MYALGIA [None]
  - MYOSITIS [None]
  - NEUROPATHY PERIPHERAL [None]
  - PARAESTHESIA [None]
